FAERS Safety Report 4433603-9 (Version None)
Quarter: 2004Q3

REPORT INFORMATION
  Report Type: 
  Country: None (occurrence: None)
  Receive Date: 20040824
  Receipt Date: 20040730
  Transmission Date: 20050211
  Serious: Yes (Hospitalization)
  Sender: FDA-Public Use
  Company Number: 202337

PATIENT
  Age: 48 Year
  Sex: Female
  Weight: 45.3597 kg

DRUGS (3)
  1. AVONEX [Suspect]
     Indication: MULTIPLE SCLEROSIS
     Dosage: 30 MCG QW IM
     Route: 030
     Dates: start: 19960101, end: 20031101
  2. AVONEX [Suspect]
     Indication: MULTIPLE SCLEROSIS
     Dosage: 30 MCG QW IM
     Route: 030
     Dates: start: 20031101, end: 20040301
  3. AVONEX [Suspect]
     Indication: MULTIPLE SCLEROSIS
     Dosage: 30 MCG QW IM
     Route: 030
     Dates: start: 20040301

REACTIONS (17)
  - ADJUSTMENT DISORDER [None]
  - CHEST PAIN [None]
  - CHOLELITHIASIS [None]
  - COLONIC POLYP [None]
  - CONTUSION [None]
  - CYSTITIS [None]
  - FALL [None]
  - HEAD INJURY [None]
  - HYPOAESTHESIA [None]
  - INFLUENZA LIKE ILLNESS [None]
  - JOINT DISLOCATION [None]
  - LOSS OF CONSCIOUSNESS [None]
  - MUSCLE SPASMS [None]
  - PANCREATIC ENZYMES DECREASED [None]
  - PRECANCEROUS CELLS PRESENT [None]
  - URINARY TRACT INFECTION [None]
  - WEIGHT DECREASED [None]
